FAERS Safety Report 6703601-0 (Version None)
Quarter: 2010Q2

REPORT INFORMATION
  Report Type: 
  Country: None (occurrence: None)
  Receive Date: 20100430
  Receipt Date: 20100427
  Transmission Date: 20101027
  Serious: Yes (Other)
  Sender: FDA-Public Use
  Company Number: PHHY2010NL00760

PATIENT
  Sex: Female
  Weight: 72 kg

DRUGS (2)
  1. EXELON [Suspect]
     Dosage: 4.6 MG/ 24 HOURS
     Route: 062
     Dates: start: 20091105
  2. EXELON [Suspect]
     Dosage: 9.5 MG/24 HOURS
     Route: 062
     Dates: start: 20100102, end: 20100104

REACTIONS (2)
  - FEELING ABNORMAL [None]
  - MALAISE [None]
